FAERS Safety Report 19036291 (Version 4)
Quarter: 2022Q1

REPORT INFORMATION
  Report Type: Report from Study
  Country: CA (occurrence: CA)
  Receive Date: 20210322
  Receipt Date: 20220309
  Transmission Date: 20220423
  Serious: Yes (Hospitalization)
  Sender: FDA-Public Use
  Company Number: CA-ABBVIE-21K-028-3820350-00

PATIENT
  Age: 27 Year
  Sex: Female

DRUGS (2)
  1. HUMIRA [Suspect]
     Active Substance: ADALIMUMAB
     Indication: Crohn^s disease
     Route: 058
     Dates: start: 20190613, end: 20210211
  2. HUMIRA [Suspect]
     Active Substance: ADALIMUMAB
     Route: 058

REACTIONS (5)
  - General physical health deterioration [Unknown]
  - Tooth disorder [Unknown]
  - Osteomyelitis [Not Recovered/Not Resolved]
  - Tooth abscess [Unknown]
  - COVID-19 [Unknown]

NARRATIVE: CASE EVENT DATE: 20210201
